FAERS Safety Report 7765255-4 (Version None)
Quarter: 2011Q3

REPORT INFORMATION
  Report Type: 
  Country: None (occurrence: None)
  Receive Date: 20110921
  Receipt Date: 20110831
  Transmission Date: 20111222
  Serious: Yes (Hospitalization)
  Sender: FDA-Public Use
  Company Number: JP-GLAXOSMITHKLINE-B0744074A

PATIENT
  Sex: Female
  Weight: 47 kg

DRUGS (3)
  1. LAMICTAL [Suspect]
     Indication: BIPOLAR DISORDER
     Route: 048
     Dates: start: 20110721, end: 20110806
  2. CELECOXIB [Concomitant]
     Indication: BIPOLAR DISORDER
     Dosage: 200MG PER DAY
     Route: 048
     Dates: start: 20110607, end: 20110807
  3. ANAFRANIL [Concomitant]
     Indication: BIPOLAR DISORDER
     Dosage: 10MG PER DAY
     Dates: start: 20110803, end: 20110807

REACTIONS (21)
  - ERYTHEMA [None]
  - OEDEMA MUCOSAL [None]
  - CYSTITIS [None]
  - STEVENS-JOHNSON SYNDROME [None]
  - TOXIC EPIDERMAL NECROLYSIS [None]
  - PARAESTHESIA ORAL [None]
  - HYPERAEMIA [None]
  - ORAL MUCOSA EROSION [None]
  - FLUSHING [None]
  - ERYTHEMA MULTIFORME [None]
  - LIP SWELLING [None]
  - RASH MACULO-PAPULAR [None]
  - PYREXIA [None]
  - RASH ERYTHEMATOUS [None]
  - CONJUNCTIVAL HYPERAEMIA [None]
  - DYSURIA [None]
  - BLISTER [None]
  - SKIN EROSION [None]
  - ORAL MUCOSAL ERYTHEMA [None]
  - TONGUE COATED [None]
  - CHEILITIS [None]
